FAERS Safety Report 20946984 (Version 1)
Quarter: 2022Q2

REPORT INFORMATION
  Report Type: Spontaneous
  Country: US (occurrence: US)
  Receive Date: 20220610
  Receipt Date: 20220610
  Transmission Date: 20220721
  Serious: No
  Sender: FDA-Public Use
  Company Number: US-PFIZER INC-202200814656

PATIENT
  Sex: Female

DRUGS (3)
  1. PAXLOVID [Suspect]
     Active Substance: NIRMATRELVIR\RITONAVIR
     Indication: COVID-19 treatment
     Dosage: UNK
  2. COLCHICINE [Concomitant]
     Active Substance: COLCHICINE
     Indication: Secondary amyloidosis
     Dosage: UNK, DAILY
  3. COLCHICINE [Concomitant]
     Active Substance: COLCHICINE
     Indication: Urticarial vasculitis

REACTIONS (1)
  - Contraindicated product administered [Unknown]
